FAERS Safety Report 8991336 (Version 1)
Quarter: 2012Q4

REPORT INFORMATION
  Report Type: 
  Country: EC (occurrence: EC)
  Receive Date: 20121230
  Receipt Date: 20121230
  Transmission Date: 20130627
  Serious: Yes (Other)
  Sender: FDA-Public Use
  Company Number: PHHY2012EC120551

PATIENT
  Sex: Female

DRUGS (6)
  1. EXFORGE HCT [Suspect]
     Dosage: 1 DF (160 mg vals/ 5 mg amlo/ 12.5 mg HCTZ), QD
     Route: 048
  2. METHOTREXATE [Concomitant]
     Dosage: UNK UKN, UNK
     Dates: start: 20121124
  3. BEFORTAN [Concomitant]
     Dosage: UNK, QD
     Route: 048
     Dates: start: 20121124
  4. FOLIC ACID [Concomitant]
     Dosage: UNK UKN, UNK
     Dates: start: 20121124
  5. OMEZOL [Concomitant]
     Dosage: UNK, QD
     Route: 048
     Dates: start: 20121124
  6. SULFAXTATINE [Concomitant]
     Dosage: UNK UKN, QD
     Dates: start: 20121124

REACTIONS (3)
  - Rheumatoid arthritis [Unknown]
  - Hypoaesthesia [Recovering/Resolving]
  - Burning feet syndrome [Recovering/Resolving]
